FAERS Safety Report 5333436-5 (Version None)
Quarter: 2007Q2

REPORT INFORMATION
  Report Type: 
  Country: None (occurrence: None)
  Receive Date: 20070524
  Receipt Date: 20070517
  Transmission Date: 20071010
  Serious: Yes (Life-Threatening, Hospitalization)
  Sender: FDA-Public Use
  Company Number: US-GENENTECH-240758

PATIENT
  Sex: Male
  Weight: 78.458 kg

DRUGS (23)
  1. BEVACIZUMAB [Suspect]
     Indication: NEOPLASM MALIGNANT
     Dosage: 15 MG/KG, UNK
     Route: 042
     Dates: start: 20070402
  2. CARBOPLATIN [Suspect]
     Indication: NEOPLASM MALIGNANT
     Dosage: 6 AUC, UNK
     Route: 042
     Dates: start: 20070402
  3. PACLITAXEL [Suspect]
     Indication: NEOPLASM MALIGNANT
     Dosage: 200 MG/M2, UNK
     Route: 042
     Dates: start: 20070402
  4. FLUOROURACIL [Suspect]
     Indication: NEOPLASM MALIGNANT
     Dosage: 200 MG/M2, UNK
     Route: 042
     Dates: start: 20070402
  5. DIGOXIN [Concomitant]
     Indication: DRUG USE FOR UNKNOWN INDICATION
     Dosage: 0.25 MG, QD
     Route: 048
  6. FAMOTIDINE [Concomitant]
     Indication: DRUG USE FOR UNKNOWN INDICATION
     Dosage: 20 MG, Q12H
     Route: 042
  7. MEROPENEM [Concomitant]
     Indication: DRUG USE FOR UNKNOWN INDICATION
     Dosage: 1 G, Q8H
     Route: 042
  8. FLAGYL [Concomitant]
     Indication: DRUG USE FOR UNKNOWN INDICATION
     Dosage: 500 MG, Q8H
     Route: 042
  9. ACETAMINOPHEN [Concomitant]
     Indication: DRUG USE FOR UNKNOWN INDICATION
     Dosage: 650 MG, PRN
     Route: 054
  10. FENTANYL [Concomitant]
     Indication: MECHANICAL VENTILATION
     Dosage: UNK, PRN
     Route: 042
  11. GLUCAGON [Concomitant]
     Indication: HYPERGLYCAEMIA
     Dosage: UNK, PRN
     Route: 042
  12. REGULAR INSULIN [Concomitant]
     Indication: HYPERGLYCAEMIA
     Dosage: UNK, PRN
     Route: 058
  13. LORAZEPAM [Concomitant]
     Indication: MECHANICAL VENTILATION
     Dosage: UNK, PRN
     Route: 042
  14. MORPHINE [Concomitant]
     Indication: PAIN
     Dosage: UNK, PRN
  15. ZOFRAN [Concomitant]
     Indication: NAUSEA
     Dosage: UNK, PRN
     Route: 042
  16. PROPOFOL [Concomitant]
     Indication: DRUG USE FOR UNKNOWN INDICATION
     Route: 042
  17. SODIUM CHLORIDE [Concomitant]
     Indication: DRUG USE FOR UNKNOWN INDICATION
     Dosage: 1000 ML, CONTINUOUS
     Route: 042
  18. CEFOXITIN [Concomitant]
     Indication: DRUG USE FOR UNKNOWN INDICATION
     Dosage: 1 G, Q8H
     Route: 042
  19. LIDOCAINE [Concomitant]
     Indication: DRUG USE FOR UNKNOWN INDICATION
     Dosage: UNK, SINGLE
  20. WELLBUTRIN [Concomitant]
     Indication: DRUG USE FOR UNKNOWN INDICATION
     Dosage: 150 MG, TID
  21. ZOCOR [Concomitant]
     Indication: DRUG USE FOR UNKNOWN INDICATION
     Dosage: 40 MG, QD
  22. LANTUS [Concomitant]
     Indication: DRUG USE FOR UNKNOWN INDICATION
     Dosage: 55 UNIT, QD
  23. ACTOS [Concomitant]
     Indication: DRUG USE FOR UNKNOWN INDICATION
     Dosage: 30 UNIT, QPM

REACTIONS (3)
  - ABDOMINAL PAIN [None]
  - DIVERTICULAR PERFORATION [None]
  - DIVERTICULITIS [None]
